FAERS Safety Report 19588544 (Version 1)
Quarter: 2021Q3

REPORT INFORMATION
  Report Type: Report from Study
  Country: TW (occurrence: TW)
  Receive Date: 20210721
  Receipt Date: 20210721
  Transmission Date: 20211014
  Serious: Yes (Hospitalization, Other)
  Sender: FDA-Public Use
  Company Number: TW-INCYTE CORPORATION-2018IN013329

PATIENT

DRUGS (11)
  1. JAKAVI [Suspect]
     Active Substance: RUXOLITINIB
     Dosage: 20 MG
     Route: 048
     Dates: start: 20190215, end: 20190321
  2. JAKAVI [Suspect]
     Active Substance: RUXOLITINIB
     Dosage: 60 MG
     Route: 048
     Dates: start: 20190322, end: 20190411
  3. ALLOPURINOL. [Concomitant]
     Active Substance: ALLOPURINOL
     Indication: PROPHYLAXIS
     Dosage: 100 MG
     Route: 048
     Dates: start: 20150731, end: 20190119
  4. JAKAVI [Suspect]
     Active Substance: RUXOLITINIB
     Dosage: 40 MG
     Route: 048
     Dates: start: 20181227, end: 20190214
  5. ASPIRIN [ACETYLSALICYLIC ACID] [Concomitant]
     Active Substance: ASPIRIN
     Indication: PROPHYLAXIS
     Dosage: 100 MG
     Route: 048
     Dates: start: 20040802, end: 20190804
  6. TAMSULOSIN [Concomitant]
     Active Substance: TAMSULOSIN
     Indication: PROPHYLAXIS
     Dosage: 0.4 MG
     Route: 048
     Dates: start: 20191004
  7. JAKAVI [Suspect]
     Active Substance: RUXOLITINIB
     Indication: MYELOFIBROSIS
     Dosage: 40 MG
     Route: 048
     Dates: start: 20180903, end: 20181213
  8. JAKAVI [Suspect]
     Active Substance: RUXOLITINIB
     Dosage: 40 MG
     Route: 048
     Dates: start: 20190412, end: 20191003
  9. JAKAVI [Suspect]
     Active Substance: RUXOLITINIB
     Dosage: 20 MG
     Route: 048
     Dates: start: 20191004
  10. JAKAVI [Suspect]
     Active Substance: RUXOLITINIB
     Dosage: 60 MG, QOD
     Route: 048
     Dates: start: 20181214, end: 20181226
  11. FEBUXOSTAT. [Concomitant]
     Active Substance: FEBUXOSTAT
     Indication: PROPHYLAXIS
     Dosage: 80 MG
     Route: 048
     Dates: start: 20190215

REACTIONS (18)
  - Mean cell haemoglobin concentration decreased [Unknown]
  - Myelocyte count increased [Unknown]
  - Haemoglobin decreased [Unknown]
  - Incorrect dose administered [Unknown]
  - Red blood cell count decreased [Unknown]
  - White blood cell count decreased [Unknown]
  - Gastric ulcer haemorrhage [Recovered/Resolved]
  - Haematocrit decreased [Unknown]
  - Red cell distribution width increased [Unknown]
  - Pleural disorder [Recovering/Resolving]
  - Tuberculosis [Recovering/Resolving]
  - Abdominal pain [Recovered/Resolved]
  - Platelet count decreased [Unknown]
  - Neutrophil count increased [Unknown]
  - Splenic infarction [Recovered/Resolved]
  - Gastric ulcer [Recovered/Resolved]
  - Lymphocyte percentage increased [Unknown]
  - Inappropriate schedule of product administration [Unknown]

NARRATIVE: CASE EVENT DATE: 20181214
